FAERS Safety Report 9308941 (Version 2)
Quarter: 2013Q4

REPORT INFORMATION
  Report Type: Report from Study
  Country: ES (occurrence: ES)
  Receive Date: 20130524
  Receipt Date: 20131202
  Transmission Date: 20140711
  Serious: Yes (Other)
  Sender: FDA-Public Use
  Company Number: ES-TEVA-407724USA

PATIENT
  Age: 56 Year
  Sex: Female
  Weight: 39.9 kg

DRUGS (27)
  1. TREANDA [Suspect]
     Indication: B-CELL LYMPHOMA
     Route: 042
     Dates: start: 20110616, end: 20110617
  2. ARA-C (CYTARABINE) [Suspect]
     Indication: B-CELL LYMPHOMA
  3. VP-16 (ETOPSIDE) [Suspect]
     Indication: B-CELL LYMPHOMA
     Dosage: REGIMEN 1
  4. MELPHALAN [Suspect]
     Indication: B-CELL LYMPHOMA
     Dosage: REGIMEN 1
  5. ADOLONTA (TRAMADOL HYDROCHLORIDE) [Concomitant]
     Indication: OROPHARYNGEAL PAIN
     Dosage: 300 MILLIGRAM DAILY;
     Route: 042
     Dates: start: 20110625, end: 20110625
  6. ALLOPURINOL [Concomitant]
     Indication: HYPERURICAEMIA
     Dosage: 300 MILLIGRAM DAILY;
     Route: 048
     Dates: start: 20100511, end: 20110622
  7. ALPRAZOLAM [Concomitant]
     Indication: INSOMNIA
     Dosage: .5 MILLIGRAM DAILY;
     Route: 048
     Dates: start: 20110706, end: 20110729
  8. ATARAX (HYDROXYZINE DIHYDROCHLORIDE) [Concomitant]
     Indication: RASH
     Dosage: 25 MILLIGRAM DAILY;
     Route: 048
     Dates: start: 20110719, end: 20110723
  9. AZACTAM [Concomitant]
     Route: 042
     Dates: start: 20110627, end: 20110703
  10. CANCIDAS [Concomitant]
     Dosage: 50 MILLIGRAM DAILY;
     Route: 042
     Dates: start: 20110708, end: 20110726
  11. CIPROFLOXACIN [Concomitant]
     Dosage: 1000 MILLIGRAM DAILY;
     Route: 048
     Dates: start: 20110613, end: 20110619
  12. FLUCONAZOLE [Concomitant]
     Dosage: 200 MILLIGRAM DAILY;
     Route: 048
     Dates: start: 20110614, end: 20110619
  13. LEVOFLOXACIN [Concomitant]
     Dosage: 500 MILLIGRAM DAILY;
     Route: 042
     Dates: start: 20110706, end: 20110707
  14. OMEPRAZOLE [Concomitant]
     Indication: PROPHYLAXIS AGAINST GASTROINTESTINAL ULCER
     Dosage: 20 MILLIGRAM DAILY;
     Route: 048
     Dates: start: 20110708, end: 20110726
  15. ONDANSETRON [Concomitant]
     Indication: PROPHYLAXIS OF NAUSEA AND VOMITING
     Dosage: 8 MILLIGRAM DAILY;
     Route: 042
     Dates: start: 20110627, end: 20110717
  16. POLARAMINE (DEXCHLORPHENIRAMINE MALEATE) [Concomitant]
     Indication: RASH
     Dosage: 15 MILLIGRAM DAILY;
     Route: 042
     Dates: start: 20110719, end: 20110726
  17. SEGURIL (FUROSEMIDE) [Concomitant]
     Dosage: 20 MILLIGRAM DAILY;
     Route: 042
     Dates: start: 20110718, end: 20110726
  18. SEPTRIN FORTE (SULFAMETHOXAZOLE, TRIMETHOPRIM) [Concomitant]
     Indication: INFECTION PROPHYLAXIS
     Dosage: 1600/320
     Dates: start: 20110614, end: 20110620
  19. SERTALINE [Concomitant]
     Dosage: 25 MILLIGRAM DAILY;
     Route: 048
     Dates: start: 20110105, end: 20110726
  20. URBASON (METHYLPREDNISOLONE) [Concomitant]
     Indication: RASH
     Dosage: 20 MILLIGRAM DAILY;
     Route: 051
     Dates: start: 20110718, end: 20110726
  21. URSOCHOL (URSODEOXYCHOLIC ACID) [Concomitant]
     Dosage: 450 MILLIGRAM DAILY;
     Route: 048
     Dates: start: 20110614, end: 20110707
  22. VANCOMYCIN [Concomitant]
     Dosage: 1.8 GRAM DAILY;
     Route: 042
     Dates: start: 20110628, end: 20110707
  23. VFEND (VORICONAZOLE) [Concomitant]
     Dosage: 400 GRAM DAILY;
     Route: 042
     Dates: start: 20110627, end: 20110705
  24. ZOVIRAX (ACYCLOVIR) [Concomitant]
     Dosage: 700 MILLIGRAM DAILY;
     Route: 042
     Dates: start: 20110624, end: 20110707
  25. PREDNISONE [Concomitant]
     Dosage: 10 MILLIGRAM DAILY;
     Route: 048
     Dates: start: 20110729, end: 20110818
  26. LORATADINE [Concomitant]
     Indication: PRURITUS
     Dosage: 10 MILLIGRAM DAILY;
     Route: 048
     Dates: start: 20110901
  27. LORAZEPAM [Concomitant]
     Indication: PROPHYLAXIS
     Dosage: 1 MILLIGRAM DAILY;
     Route: 048
     Dates: start: 20110902

REACTIONS (1)
  - Engraft failure [Recovered/Resolved]
